FAERS Safety Report 24529927 (Version 1)
Quarter: 2024Q4

REPORT INFORMATION
  Report Type: Spontaneous
  Country: US (occurrence: None)
  Receive Date: 20241018
  Receipt Date: 20241018
  Transmission Date: 20250115
  Serious: Yes (Other)
  Sender: Public
  Company Number: None

PATIENT
  Age: 67 Year
  Sex: Female
  Weight: 63.9 kg

DRUGS (1)
  1. OXYMETAZOLINE HYDROCHLORIDE [Suspect]
     Active Substance: OXYMETAZOLINE HYDROCHLORIDE
     Indication: Sinus congestion
     Dosage: OTHER STRENGTH : NO STRENGTH;?OTHER QUANTITY : 1 SPRAY(S);?FREQUENCY : EVERY 12 HOURS;?OTHER ROUTE :
     Route: 050
     Dates: start: 20241014, end: 20241014

REACTIONS (4)
  - Product formulation issue [None]
  - Product label confusion [None]
  - Sinus pain [None]
  - Nasal discomfort [None]

NARRATIVE: CASE EVENT DATE: 20241014
